FAERS Safety Report 19173166 (Version 3)
Quarter: 2021Q2

REPORT INFORMATION
  Report Type: Report from Study
  Country: US (occurrence: US)
  Receive Date: 20210423
  Receipt Date: 20210429
  Transmission Date: 20210717
  Serious: Yes (Other)
  Sender: FDA-Public Use
  Company Number: US-GLAXOSMITHKLINE-US2021AMR088431

PATIENT
  Sex: Female

DRUGS (3)
  1. NIRAPARIB [Suspect]
     Active Substance: NIRAPARIB
     Indication: OVARIAN CANCER
     Dosage: 100 MG, QD
     Dates: start: 20210407
  2. NIRAPARIB [Suspect]
     Active Substance: NIRAPARIB
     Dosage: 100 MG, QD
     Dates: start: 20210422
  3. NIRAPARIB [Suspect]
     Active Substance: NIRAPARIB
     Dosage: 200 MG, QD
     Dates: start: 20210414

REACTIONS (8)
  - Sleep disorder [Recovering/Resolving]
  - Tinnitus [Recovered/Resolved]
  - Neuropathy peripheral [Recovering/Resolving]
  - Oropharyngeal pain [Recovering/Resolving]
  - Off label use [Unknown]
  - Hallucination [Recovered/Resolved]
  - Insomnia [Recovering/Resolving]
  - Dry throat [Recovering/Resolving]
